FAERS Safety Report 11883123 (Version 1)
Quarter: 2015Q4

REPORT INFORMATION
  Report Type: Spontaneous
  Country: US (occurrence: US)
  Receive Date: 20151231
  Receipt Date: 20151231
  Transmission Date: 20160305
  Serious: No
  Sender: FDA-Public Use
  Company Number: US-SHIRE-US201516860

PATIENT
  Age: 29 Year
  Sex: Male
  Weight: 72.56 kg

DRUGS (3)
  1. CARBATROL [Suspect]
     Active Substance: CARBAMAZEPINE
     Indication: EPILEPSY
     Dosage: 2200 MG, UNKNOWN
     Route: 048
     Dates: start: 201509
  2. PHENYTOIN. [Concomitant]
     Active Substance: PHENYTOIN
     Indication: EPILEPSY
     Dosage: UNK, UNKNOWN
     Route: 065
  3. ATORVASTATIN [Concomitant]
     Active Substance: ATORVASTATIN
     Indication: BLOOD CHOLESTEROL INCREASED
     Dosage: UNK, UNKNOWN
     Route: 065

REACTIONS (7)
  - Lethargy [Unknown]
  - Dysarthria [Unknown]
  - Vision blurred [Unknown]
  - Fatigue [Unknown]
  - Dysphemia [Unknown]
  - Prescribed overdose [Unknown]
  - Insomnia [Unknown]

NARRATIVE: CASE EVENT DATE: 201511
